FAERS Safety Report 25117088 (Version 1)
Quarter: 2025Q1

REPORT INFORMATION
  Report Type: Spontaneous
  Country: US (occurrence: US)
  Receive Date: 20250325
  Receipt Date: 20250325
  Transmission Date: 20250408
  Serious: No
  Sender: BIOGEN
  Company Number: US-BBU-2025000013

PATIENT
  Sex: Female

DRUGS (2)
  1. TOCILIZUMAB [Suspect]
     Active Substance: TOCILIZUMAB
     Indication: Still^s disease
  2. METHOTREXATE [Concomitant]
     Active Substance: METHOTREXATE
     Indication: Still^s disease

REACTIONS (3)
  - Throat tightness [Unknown]
  - Dyspnoea [Unknown]
  - Off label use [Unknown]
